FAERS Safety Report 18439793 (Version 1)
Quarter: 2020Q4

REPORT INFORMATION
  Report Type: Other
  Country: CA (occurrence: CA)
  Receive Date: 20201029
  Receipt Date: 20201029
  Transmission Date: 20210114
  Serious: Yes (Other)
  Sender: FDA-Public Use
  Company Number: CA-CELLTRION INC.-2020CA029195

PATIENT

DRUGS (11)
  1. RITUXIMAB (UNKNOWN) [Suspect]
     Active Substance: RITUXIMAB
     Dosage: 1000 MG
     Route: 042
  2. ARAVA [Concomitant]
     Active Substance: LEFLUNOMIDE
  3. CICLOSPORIN [Concomitant]
     Active Substance: CYCLOSPORINE
  4. GABAPENTIN. [Concomitant]
     Active Substance: GABAPENTIN
  5. RITUXIMAB (UNKNOWN) [Suspect]
     Active Substance: RITUXIMAB
     Indication: RHEUMATOID ARTHRITIS
     Dosage: UNK
     Route: 042
  6. RAMIPRIL. [Concomitant]
     Active Substance: RAMIPRIL
  7. ACETYLSALICYLIC ACID [Concomitant]
     Active Substance: ASPIRIN
  8. FOLIC ACID. [Concomitant]
     Active Substance: FOLIC ACID
  9. BISOPROLOL [Concomitant]
     Active Substance: BISOPROLOL
  10. OMEPRAZOLE. [Concomitant]
     Active Substance: OMEPRAZOLE
  11. SULFASALAZINE. [Concomitant]
     Active Substance: SULFASALAZINE

REACTIONS (1)
  - Renal disorder [Not Recovered/Not Resolved]
